FAERS Safety Report 8334380-1 (Version None)
Quarter: 2012Q2

REPORT INFORMATION
  Report Type: 
  Country: None (occurrence: None)
  Receive Date: 20120503
  Receipt Date: 20120423
  Transmission Date: 20120825
  Serious: Yes (Hospitalization)
  Sender: FDA-Public Use
  Company Number: US-ELI_LILLY_AND_COMPANY-US201201008130

PATIENT
  Sex: Female

DRUGS (2)
  1. ADCIRCA [Suspect]
     Dosage: 40 MG, QD
     Dates: start: 20101214
  2. LETAIRIS [Concomitant]

REACTIONS (1)
  - LOSS OF CONSCIOUSNESS [None]
